FAERS Safety Report 6038898-6 (Version None)
Quarter: 2009Q1

REPORT INFORMATION
  Report Type: 
  Country: None (occurrence: None)
  Receive Date: 20090114
  Receipt Date: 20090114
  Transmission Date: 20090719
  Serious: Yes (Other)
  Sender: FDA-Public Use
  Company Number: None

PATIENT
  Age: 41 Year
  Sex: Female
  Weight: 56.6996 kg

DRUGS (1)
  1. AZITHROMYCIN [Suspect]
     Indication: ACUTE SINUSITIS
     Dosage: 500 MG DAILY PO
     Route: 048
     Dates: start: 20081229, end: 20081231

REACTIONS (1)
  - PARAESTHESIA [None]
